FAERS Safety Report 19329330 (Version 2)
Quarter: 2021Q3

REPORT INFORMATION
  Report Type: Spontaneous
  Country: US (occurrence: US)
  Receive Date: 20210528
  Receipt Date: 20210701
  Transmission Date: 20211014
  Serious: Yes (Hospitalization)
  Sender: FDA-Public Use
  Company Number: US-ASTRAZENECA-2021A458360

PATIENT
  Age: 57 Year
  Sex: Female
  Weight: 67.6 kg

DRUGS (2)
  1. RYBELSUS [Concomitant]
     Active Substance: SEMAGLUTIDE
  2. XIGDUO XR [Suspect]
     Active Substance: DAPAGLIFLOZIN PROPANEDIOL\METFORMIN HYDROCHLORIDE
     Indication: TYPE 2 DIABETES MELLITUS
     Dosage: 10/1000 MG
     Route: 048
     Dates: start: 20201111, end: 20210326

REACTIONS (2)
  - Necrotising fasciitis [Recovering/Resolving]
  - Debridement [Unknown]

NARRATIVE: CASE EVENT DATE: 20210324
